FAERS Safety Report 7649739-5 (Version None)
Quarter: 2011Q3

REPORT INFORMATION
  Report Type: 
  Country: None (occurrence: None)
  Receive Date: 20110802
  Receipt Date: 20110725
  Transmission Date: 20111222
  Serious: Yes (Other)
  Sender: FDA-Public Use
  Company Number: JP-MPIJNJ-2011-02654

PATIENT

DRUGS (2)
  1. VELCADE [Suspect]
     Dosage: 1 MG/M2, UNK
     Route: 042
  2. VELCADE [Suspect]
     Indication: MULTIPLE MYELOMA
     Dosage: 1.3 MG/M2, UNK
     Route: 042
     Dates: start: 20110613, end: 20110620

REACTIONS (1)
  - TRANSAMINASES INCREASED [None]
